FAERS Safety Report 9916400 (Version 1)
Quarter: 2014Q1

REPORT INFORMATION
  Report Type: Spontaneous
  Country: US (occurrence: None)
  Receive Date: 20140220
  Receipt Date: 20140220
  Transmission Date: 20141002
  Serious: No
  Sender: FDA-Public Use
  Company Number: None

PATIENT
  Age: 58 Year
  Sex: Female

DRUGS (8)
  1. FORTEO 600MCG LILLY [Suspect]
     Indication: OSTEOPOROSIS
     Route: 058
     Dates: start: 20131206, end: 20140214
  2. VITAMIN D [Concomitant]
  3. PRISTIQ [Concomitant]
  4. KLONOPIN [Concomitant]
  5. METFORMIN [Concomitant]
  6. TRAMADOL [Concomitant]
  7. LEVEMIR [Concomitant]
  8. CITRICAL [Concomitant]

REACTIONS (4)
  - Dizziness [None]
  - Amnesia [None]
  - Syncope [None]
  - Tinnitus [None]
